FAERS Safety Report 6106842-9 (Version None)
Quarter: 2009Q1

REPORT INFORMATION
  Report Type: 
  Country: None (occurrence: None)
  Receive Date: 20090303
  Receipt Date: 20090216
  Transmission Date: 20090719
  Serious: Yes (Hospitalization, Other)
  Sender: FDA-Public Use
  Company Number: 2009AL001102

PATIENT
  Age: 87 Year
  Sex: Female

DRUGS (18)
  1. GABAPENTIN [Suspect]
     Indication: DRUG USE FOR UNKNOWN INDICATION
     Dosage: 300 MG; QID
  2. AVELOX [Concomitant]
  3. LANSOPRAZOLE [Concomitant]
  4. DANCOR [Concomitant]
  5. DEFLAMAT [Concomitant]
  6. DEXAGENTA [Concomitant]
  7. FEDIP [Concomitant]
  8. GUTTALAX [Concomitant]
  9. HYDAL [Concomitant]
  10. LAEVOLAC [Concomitant]
  11. LASIX [Concomitant]
  12. NITRODERM [Concomitant]
  13. NOVALGIN [Concomitant]
  14. PASPERTIN [Concomitant]
  15. SELOKEN [Concomitant]
  16. SINTROM [Concomitant]
  17. SORTIS [Concomitant]
  18. LORAZEPAM [Concomitant]

REACTIONS (2)
  - DYSKINESIA [None]
  - NEUTROPENIA [None]
